FAERS Safety Report 4774083-3 (Version None)
Quarter: 2005Q3

REPORT INFORMATION
  Report Type: 
  Country: None (occurrence: None)
  Receive Date: 20050919
  Receipt Date: 20050905
  Transmission Date: 20060218
  Serious: Yes (Death, Other)
  Sender: FDA-Public Use
  Company Number: 2005-07-1654

PATIENT
  Age: 68 Year
  Sex: Male

DRUGS (14)
  1. INTEGRILLIN (EPTIFIBATIDE) INJECTABLE SOLUTION [Suspect]
     Indication: ANGIOPLASTY
     Dosage: BOLUS INTRAVENOUS
     Route: 040
     Dates: start: 20050501
  2. ASPIRIN [Suspect]
     Indication: MYOCARDIAL INFARCTION
     Dosage: ORAL
     Route: 048
     Dates: start: 20050401
  3. PLAVIX [Suspect]
     Indication: MYOCARDIAL INFARCTION
  4. LOVENOX [Suspect]
     Indication: MYOCARDIAL INFARCTION
     Dates: start: 20050401
  5. PLAVIX [Suspect]
     Indication: MYOCARDIAL INFARCTION
     Dates: start: 20050401
  6. LOVENOX [Suspect]
     Indication: MYOCARDIAL INFARCTION
     Dates: start: 20050401
  7. ATORVASTATIN CALCIUM [Concomitant]
  8. RAMIPRIL [Concomitant]
  9. PREDNISOLONE [Concomitant]
  10. SALMETEROL XINAFOATE/FLUTICASONE PROPIONATE [Concomitant]
  11. VERAPAMIL HYDROCHLORIDE [Concomitant]
  12. ACETYLCYSTEINE [Concomitant]
  13. HYDROXYZINE HYDROCHLORIDE [Concomitant]
  14. MEDROL [Concomitant]

REACTIONS (1)
  - SPINAL CORD HAEMORRHAGE [None]
